FAERS Safety Report 8028347-0 (Version None)
Quarter: 2012Q1

REPORT INFORMATION
  Report Type: 
  Country: None (occurrence: None)
  Receive Date: 20120106
  Receipt Date: 20120104
  Transmission Date: 20120608
  Serious: Yes (Other)
  Sender: FDA-Public Use
  Company Number: PHHY2011JP114729

PATIENT
  Age: 56 Year
  Sex: Female

DRUGS (1)
  1. OFLOXACIN [Suspect]

REACTIONS (3)
  - AUTOIMMUNE HEPATITIS [None]
  - ANTINUCLEAR ANTIBODY INCREASED [None]
  - BLOOD IMMUNOGLOBULIN G INCREASED [None]
